FAERS Safety Report 14577431 (Version 2)
Quarter: 2018Q2

REPORT INFORMATION
  Report Type: Spontaneous
  Country: US (occurrence: US)
  Receive Date: 20180227
  Receipt Date: 20180422
  Transmission Date: 20180711
  Serious: Yes (Hospitalization, Other)
  Sender: FDA-Public Use
  Company Number: US-APOTEX-2018AP007432

PATIENT
  Age: 50 Year
  Sex: Female

DRUGS (5)
  1. SOTALOL. [Suspect]
     Active Substance: SOTALOL
     Indication: LEFT VENTRICULAR FAILURE
  2. AMIODARONE [Suspect]
     Active Substance: AMIODARONE
     Indication: PRODUCT USED FOR UNKNOWN INDICATION
     Dosage: UNK
     Route: 065
  3. SOTALOL. [Suspect]
     Active Substance: SOTALOL
     Indication: VENTRICULAR TACHYCARDIA
     Dosage: UNK
     Route: 065
  4. MEXILETINE [Suspect]
     Active Substance: MEXILETINE
     Indication: VENTRICULAR TACHYCARDIA
     Dosage: UNK
     Route: 065
  5. MEXILETINE [Suspect]
     Active Substance: MEXILETINE
     Indication: LEFT VENTRICULAR FAILURE

REACTIONS (2)
  - Drug ineffective [Unknown]
  - Pulmonary toxicity [Unknown]
